FAERS Safety Report 11603149 (Version 1)
Quarter: 2015Q4

REPORT INFORMATION
  Report Type: Spontaneous
  Country: US (occurrence: US)
  Receive Date: 20151006
  Receipt Date: 20151006
  Transmission Date: 20160304
  Serious: No
  Sender: FDA-Public Use
  Company Number: US-AMGEN-USASP2014087839

PATIENT
  Age: 70 Year
  Sex: Female

DRUGS (8)
  1. OMEPRAZOLE. [Concomitant]
     Active Substance: OMEPRAZOLE
  2. PROLIA [Suspect]
     Active Substance: DENOSUMAB
     Indication: PRODUCT USED FOR UNKNOWN INDICATION
     Dosage: UNK
     Route: 065
     Dates: start: 201402
  3. PRAVASTATIN [Concomitant]
     Active Substance: PRAVASTATIN\PRAVASTATIN SODIUM
  4. GABAPENTIN. [Concomitant]
     Active Substance: GABAPENTIN
  5. LANTUS [Concomitant]
     Active Substance: INSULIN GLARGINE
  6. LEVOTHYROXIN [Concomitant]
     Active Substance: LEVOTHYROXINE
  7. AVAPRO [Concomitant]
     Active Substance: IRBESARTAN
  8. METFORMIN [Concomitant]
     Active Substance: METFORMIN HYDROCHLORIDE

REACTIONS (8)
  - Diarrhoea [Not Recovered/Not Resolved]
  - Cold sweat [Unknown]
  - Pain of skin [Recovered/Resolved]
  - Rash [Recovered/Resolved]
  - Headache [Unknown]
  - Nail disorder [Unknown]
  - Dizziness [Unknown]
  - Back pain [Unknown]
